FAERS Safety Report 7439324-2 (Version None)
Quarter: 2011Q2

REPORT INFORMATION
  Report Type: 
  Country: None (occurrence: None)
  Receive Date: 20110427
  Receipt Date: 20110421
  Transmission Date: 20111010
  Serious: No
  Sender: FDA-Public Use
  Company Number: US-PFIZER INC-2011087303

PATIENT
  Age: 57 Year
  Sex: Male

DRUGS (3)
  1. ZITHROMAX [Suspect]
     Dosage: UNK
  2. POTASSIUM CHLORIDE [Suspect]
     Dosage: UNK
  3. ZOLEDRONIC ACID [Suspect]
     Dosage: UNK

REACTIONS (12)
  - DRUG INEFFECTIVE [None]
  - NECK PAIN [None]
  - MUSCULOSKELETAL PAIN [None]
  - MUSCLE SPASMS [None]
  - HEADACHE [None]
  - OESOPHAGEAL PAIN [None]
  - ABDOMINAL PAIN UPPER [None]
  - DYSPNOEA [None]
  - TREMOR [None]
  - CHEST PAIN [None]
  - WEIGHT DECREASED [None]
  - PYREXIA [None]
